FAERS Safety Report 11861560 (Version 1)
Quarter: 2015Q4

REPORT INFORMATION
  Report Type: Spontaneous
  Country: CH (occurrence: CH)
  Receive Date: 20151222
  Receipt Date: 20151222
  Transmission Date: 20160305
  Serious: Yes (Hospitalization)
  Sender: FDA-Public Use
  Company Number: CH-PFIZER INC-2015449320

PATIENT
  Age: 75 Year
  Sex: Female
  Weight: 66 kg

DRUGS (7)
  1. ZOCOR [Interacting]
     Active Substance: SIMVASTATIN
     Dosage: 80 MG, 1X/DAY
     Route: 048
     Dates: start: 201510, end: 201510
  2. EZETROL [Concomitant]
     Active Substance: EZETIMIBE
     Indication: HYPERLIPIDAEMIA
     Dosage: 10 MG, 1X/DAY
     Route: 048
     Dates: start: 201510, end: 20151119
  3. ZOCOR [Interacting]
     Active Substance: SIMVASTATIN
     Indication: HYPERLIPIDAEMIA
     Dosage: 40 MG, 1X/DAY
     Route: 048
     Dates: start: 201505, end: 201510
  4. ALVESCO [Concomitant]
     Active Substance: CICLESONIDE
     Dosage: 160 UG, 1X/DAY
     Route: 002
     Dates: end: 20151119
  5. AZITHROMYCIN [Suspect]
     Active Substance: AZITHROMYCIN ANHYDROUS
     Dosage: 250 MG, ALTERNATE DAY
     Route: 048
     Dates: end: 20151119
  6. SURMONTIL /00051802/ [Concomitant]
     Dosage: 100 MG, 1X/DAY
     Route: 048
     Dates: end: 20151119
  7. TOREM /01036501/ [Concomitant]
     Active Substance: TORSEMIDE
     Indication: HYPERTENSION
     Dosage: 5 MG, 1X/DAY
     Route: 048
     Dates: end: 20151119

REACTIONS (7)
  - Acute kidney injury [Recovering/Resolving]
  - Prescribed overdose [Recovered/Resolved]
  - Fatigue [Recovering/Resolving]
  - Myalgia [Recovering/Resolving]
  - Drug interaction [Recovered/Resolved]
  - Rhabdomyolysis [Recovering/Resolving]
  - Chromaturia [Recovered/Resolved]

NARRATIVE: CASE EVENT DATE: 2015
